FAERS Safety Report 8739550 (Version 2)
Quarter: 2012Q4

REPORT INFORMATION
  Report Type: 
  Country: JP (occurrence: JP)
  Receive Date: 20120823
  Receipt Date: 20120926
  Transmission Date: 20130627
  Serious: Yes (Hospitalization)
  Sender: FDA-Public Use
  Company Number: JP-ROCHE-1102940

PATIENT
  Age: 78 Year
  Sex: Male

DRUGS (5)
  1. LUCENTIS [Suspect]
     Indication: AGE-RELATED MACULAR DEGENERATION
     Route: 050
     Dates: start: 20120413, end: 20120413
  2. LUCENTIS [Suspect]
     Route: 050
     Dates: start: 20120712, end: 20120712
  3. CRAVIT [Concomitant]
     Indication: PRODUCT USED FOR UNKNOWN INDICATION
     Route: 047
     Dates: start: 20120709, end: 20120718
  4. ISODINE [Concomitant]
     Route: 065
     Dates: start: 20120712, end: 20120712
  5. HYALEIN [Concomitant]

REACTIONS (1)
  - Endophthalmitis [Unknown]
